FAERS Safety Report 5820707-9 (Version None)
Quarter: 2008Q3

REPORT INFORMATION
  Report Type: 
  Country: None (occurrence: None)
  Receive Date: 20080724
  Receipt Date: 20080305
  Transmission Date: 20090109
  Serious: No
  Sender: FDA-Public Use
  Company Number: A0713570A

PATIENT
  Age: 75 Year
  Sex: Female

DRUGS (4)
  1. AVANDIA [Suspect]
     Dosage: 4MG PER DAY
     Route: 048
  2. LIPITOR [Concomitant]
  3. DIOVAN [Concomitant]
  4. AVANDIA [Concomitant]

REACTIONS (4)
  - HEART RATE DECREASED [None]
  - HYPOTENSION [None]
  - RED BLOOD CELL COUNT DECREASED [None]
  - WHITE BLOOD CELL COUNT DECREASED [None]
